FAERS Safety Report 6038202-3 (Version None)
Quarter: 2009Q1

REPORT INFORMATION
  Report Type: 
  Country: None (occurrence: None)
  Receive Date: 20090115
  Receipt Date: 20090105
  Transmission Date: 20090719
  Serious: Yes (Death, Other)
  Sender: FDA-Public Use
  Company Number: US-WYE-H07552509

PATIENT
  Age: 46 Year
  Sex: Male

DRUGS (4)
  1. LORATADINE [Suspect]
     Dosage: UNKNOWN
     Route: 048
     Dates: end: 20070101
  2. DILTIAZEM [Suspect]
     Indication: BLOOD PRESSURE
     Dosage: 240 MG
     Route: 048
     Dates: end: 20070101
  3. LABETALOL HCL [Suspect]
     Indication: BLOOD PRESSURE
     Dosage: 400MG
     Route: 048
     Dates: end: 20070101
  4. AMLODIPINE [Suspect]
     Indication: BLOOD PRESSURE
     Dosage: 10 MG
     Route: 048
     Dates: end: 20070101

REACTIONS (4)
  - ABDOMINAL PAIN [None]
  - HYPOTENSION [None]
  - MEDICATION ERROR [None]
  - NAUSEA [None]
